FAERS Safety Report 15225346 (Version 2)
Quarter: 2018Q4

REPORT INFORMATION
  Report Type: Spontaneous
  Country: US (occurrence: US)
  Receive Date: 20180801
  Receipt Date: 20181130
  Transmission Date: 20190204
  Serious: Yes (Hospitalization, Other)
  Sender: FDA-Public Use
  Company Number: US-CIPLA LTD.-STD201201-000064

PATIENT

DRUGS (4)
  1. ALBUTEROL                          /00139501/ [Concomitant]
     Active Substance: ALBUTEROL
     Indication: EMPHYSEMA
     Dosage: UNK
     Route: 065
  2. COMBIVENT [Concomitant]
     Active Substance: ALBUTEROL SULFATE\IPRATROPIUM BROMIDE
     Indication: EMPHYSEMA
     Dosage: UNK, EVERY 6 HOURS
     Route: 065
  3. CIPROFLOXACIN. [Interacting]
     Active Substance: CIPROFLOXACIN
     Indication: URINARY TRACT INFECTION
     Dosage: 500 MG, BID
     Route: 065
  4. CITALOPRAM [Suspect]
     Active Substance: CITALOPRAM HYDROBROMIDE
     Indication: DEPRESSION
     Dosage: 60 MG, DAILY
     Route: 065

REACTIONS (7)
  - Drug interaction [Unknown]
  - Electrocardiogram QT prolonged [Recovering/Resolving]
  - Seizure [Unknown]
  - Torsade de pointes [Recovered/Resolved]
  - Ejection fraction decreased [Recovering/Resolving]
  - Extrasystoles [Recovered/Resolved]
  - Mental status changes [Recovered/Resolved]
